FAERS Safety Report 17499392 (Version 1)
Quarter: 2020Q1

REPORT INFORMATION
  Report Type: Spontaneous
  Country: CO (occurrence: CO)
  Receive Date: 20200305
  Receipt Date: 20200305
  Transmission Date: 20200409
  Serious: Yes (Death, Other)
  Sender: FDA-Public Use
  Company Number: CO-REGENERON PHARMACEUTICALS, INC.-2019-50171

PATIENT

DRUGS (6)
  1. EYLEA [Suspect]
     Active Substance: AFLIBERCEPT
     Indication: AGE-RELATED MACULAR DEGENERATION
     Dosage: ONCE, IN LEFT EYE
     Route: 031
     Dates: start: 20190424, end: 20190424
  2. EYLEA [Suspect]
     Active Substance: AFLIBERCEPT
     Dosage: ONCE, IN LEFT EYE
     Route: 031
     Dates: start: 20190627, end: 20190627
  3. EYLEA [Suspect]
     Active Substance: AFLIBERCEPT
     Dosage: ONCE, IN LEFT EYE
     Route: 031
     Dates: start: 20190814, end: 20190814
  4. EYLEA [Suspect]
     Active Substance: AFLIBERCEPT
     Dosage: ONCE, IN LEFT EYE
     Route: 031
     Dates: start: 20190522, end: 20190522
  5. EYLEA [Suspect]
     Active Substance: AFLIBERCEPT
     Dosage: ONCE, IN LEFT EYE
     Route: 031
     Dates: start: 20191004, end: 20191004
  6. EYLEA [Suspect]
     Active Substance: AFLIBERCEPT
     Dosage: ONCE, IN LEFT EYE, LAST INJECTION, TOTAL OF 6 DOSES
     Route: 031
     Dates: start: 20191028, end: 20191028

REACTIONS (5)
  - Retinal detachment [Unknown]
  - Cataract operation [Unknown]
  - Oxygen saturation decreased [Unknown]
  - Metastases to eye [Fatal]
  - Drug ineffective [Unknown]

NARRATIVE: CASE EVENT DATE: 20191217
